FAERS Safety Report 7745163-5 (Version None)
Quarter: 2011Q3

REPORT INFORMATION
  Report Type: 
  Country: None (occurrence: None)
  Receive Date: 20110908
  Receipt Date: 20110825
  Transmission Date: 20111222
  Serious: Yes (Life-Threatening, Hospitalization, Disabling, Other)
  Sender: FDA-Public Use
  Company Number: 2009AL003800

PATIENT
  Age: 66 Year
  Sex: Male
  Weight: 79.3795 kg

DRUGS (39)
  1. DIGOXIN [Suspect]
     Indication: PALPITATIONS
     Dosage: 0.25 MG;  ;PO
     Route: 048
     Dates: start: 19850101, end: 20070924
  2. SPIRONOLACTONE [Concomitant]
  3. NORVASC [Concomitant]
  4. INFLUENZA VACCINE [Concomitant]
  5. CEFTRIAXONE [Concomitant]
  6. ZOSYN [Concomitant]
  7. DOPAMINE HCL [Concomitant]
  8. INSULIN [Concomitant]
  9. SENOKOT [Concomitant]
  10. DIGIBIND [Concomitant]
  11. M.V.I. [Concomitant]
  12. FLAGYL [Concomitant]
  13. METOPROLOL TARTRATE [Concomitant]
  14. CANASA [Concomitant]
  15. CARDIZEM [Concomitant]
  16. PRINIVIL [Concomitant]
  17. HYDROCHLOROTHIAZIDE [Concomitant]
  18. IRON SULFATETHIAMIN COMPOUND TAB [Concomitant]
  19. PEPCID [Concomitant]
  20. FAMOTIDINE [Concomitant]
  21. POTASSIUM ACETATE [Concomitant]
  22. KAYEXALATE [Concomitant]
  23. OXYCODONE HCL AND ACETAMINOPHEN [Concomitant]
  24. CIPROFLOXACIN [Concomitant]
  25. POTASSIUM CHLORIDE [Concomitant]
  26. AUGMENTIN '125' [Concomitant]
  27. LACTULOSE [Concomitant]
  28. MULTI-VITAMIN [Concomitant]
  29. VERAPAMIL [Concomitant]
  30. LEVOPHED [Concomitant]
  31. FUROSEMIDE [Concomitant]
  32. COLACE [Concomitant]
  33. XANAX [Concomitant]
  34. LOPRESSOR [Concomitant]
  35. LASIX [Concomitant]
  36. NEXIUM [Concomitant]
  37. ASPIRIN [Concomitant]
  38. FERROUS SULFATE TAB [Concomitant]
  39. LANOXIN [Concomitant]

REACTIONS (28)
  - PROSTATIC SPECIFIC ANTIGEN INCREASED [None]
  - PERITONITIS BACTERIAL [None]
  - CHILLS [None]
  - INGUINAL HERNIA REPAIR [None]
  - PORTAL HYPERTENSION [None]
  - OEDEMA PERIPHERAL [None]
  - HYPERKALAEMIA [None]
  - ASTHENIA [None]
  - HAEMODIALYSIS [None]
  - PYREXIA [None]
  - COLONIC POLYP [None]
  - CIRRHOSIS ALCOHOLIC [None]
  - RENAL FAILURE ACUTE [None]
  - HEPATIC ENCEPHALOPATHY [None]
  - INJURY [None]
  - HEPATOCELLULAR INJURY [None]
  - WEIGHT DECREASED [None]
  - COLITIS [None]
  - LEFT ATRIAL DILATATION [None]
  - MITRAL VALVE INCOMPETENCE [None]
  - SYNCOPE [None]
  - ANAEMIA [None]
  - TRICUSPID VALVE INCOMPETENCE [None]
  - CARDIAC ARREST [None]
  - ECONOMIC PROBLEM [None]
  - COLON ADENOMA [None]
  - TOXICITY TO VARIOUS AGENTS [None]
  - ASCITES [None]
